FAERS Safety Report 5504979-6 (Version None)
Quarter: 2007Q4

REPORT INFORMATION
  Report Type: 
  Country: None (occurrence: None)
  Receive Date: 20071031
  Receipt Date: 20071019
  Transmission Date: 20080405
  Serious: Yes (Hospitalization)
  Sender: FDA-Public Use
  Company Number: 2007BI022732

PATIENT
  Age: 55 Year
  Sex: Female

DRUGS (1)
  1. NATALIZUMAB [Suspect]
     Indication: MULTIPLE SCLEROSIS
     Dosage: 300 MG; QM; IV
     Route: 042
     Dates: start: 20070619, end: 20070816

REACTIONS (5)
  - CYST [None]
  - FALL [None]
  - PAIN [None]
  - SCIATICA [None]
  - SPINAL FRACTURE [None]
